FAERS Safety Report 21943067 (Version 1)
Quarter: 2023Q1

REPORT INFORMATION
  Report Type: Spontaneous
  Country: US (occurrence: US)
  Receive Date: 20230202
  Receipt Date: 20230202
  Transmission Date: 20230418
  Serious: Yes (Hospitalization)
  Sender: FDA-Public Use
  Company Number: US-ABBVIE-4283580

PATIENT
  Sex: Female

DRUGS (2)
  1. HUMIRA [Suspect]
     Active Substance: ADALIMUMAB
     Indication: Crohn^s disease
     Route: 058
  2. REMICADE [Concomitant]
     Active Substance: INFLIXIMAB
     Indication: Product used for unknown indication
     Dosage: 10MG/KG
     Dates: start: 20211018

REACTIONS (15)
  - Hospitalisation [Recovered/Resolved]
  - Crohn^s disease [Unknown]
  - Hyperthyroidism [Unknown]
  - Colitis [Unknown]
  - Product measured potency issue [Unknown]
  - Erythema [Unknown]
  - Device issue [Unknown]
  - COVID-19 [Unknown]
  - Ulcer [Unknown]
  - Female genital tract fistula [Unknown]
  - Mucosal inflammation [Unknown]
  - Inflammation [Unknown]
  - Anaemia [Unknown]
  - Haematochezia [Unknown]
  - Mucous stools [Unknown]

NARRATIVE: CASE EVENT DATE: 20211013
